FAERS Safety Report 8154309-9 (Version None)
Quarter: 2012Q1

REPORT INFORMATION
  Report Type: 
  Country: None (occurrence: None)
  Receive Date: 20120103
  Receipt Date: 20110927
  Transmission Date: 20120608
  Serious: No
  Sender: FDA-Public Use
  Company Number: AE-2011-001003

PATIENT
  Age: 47 Year
  Sex: Male
  Weight: 78.9259 kg

DRUGS (8)
  1. ALBUTEROL INHALER (SALBUTAMOL) [Concomitant]
  2. VICODIN [Concomitant]
  3. INCIVEK [Suspect]
     Dosage: 2250 MG (750 MG,3 IN 1 D)
     Dates: start: 20110811
  4. DEXILANT [Concomitant]
  5. SINGULAIR [Concomitant]
  6. RIBASPHERE [Concomitant]
  7. PEGASYS [Concomitant]
  8. NAPROXEN (ALEVE) [Concomitant]

REACTIONS (1)
  - NAUSEA [None]
